FAERS Safety Report 5086952-8 (Version None)
Quarter: 2006Q3

REPORT INFORMATION
  Report Type: 
  Country: None (occurrence: None)
  Receive Date: 20060821
  Receipt Date: 20060808
  Transmission Date: 20061208
  Serious: Yes (Hospitalization)
  Sender: FDA-Public Use
  Company Number: 06-0096PO

PATIENT
  Age: 42 Year
  Sex: Male

DRUGS (2)
  1. MEFENAMIC ACID [Suspect]
     Dosage: 3000 MG, PO
     Route: 048
  2. AMLODIPINE [Suspect]
     Dosage: 1000 MG, PO
     Route: 048

REACTIONS (8)
  - ALCOHOL USE [None]
  - FLUID OVERLOAD [None]
  - HYPOTENSION [None]
  - LETHARGY [None]
  - MULTIPLE DRUG OVERDOSE INTENTIONAL [None]
  - OLIGURIA [None]
  - PULMONARY OEDEMA [None]
  - SUICIDE ATTEMPT [None]
